FAERS Safety Report 8264690-8 (Version None)
Quarter: 2012Q2

REPORT INFORMATION
  Report Type: 
  Country: None (occurrence: None)
  Receive Date: 20120406
  Receipt Date: 20120403
  Transmission Date: 20120825
  Serious: Yes (Death, Other)
  Sender: FDA-Public Use
  Company Number: GB-SANOFI-AVENTIS-2012SA023465

PATIENT
  Sex: Male

DRUGS (2)
  1. ENOXAPARIN SODIUM [Suspect]
  2. DABIGATRAN [Suspect]
     Route: 065

REACTIONS (3)
  - RENAL IMPAIRMENT [None]
  - MYOCARDIAL ISCHAEMIA [None]
  - GASTROINTESTINAL HAEMORRHAGE [None]
